FAERS Safety Report 8116166-6 (Version None)
Quarter: 2012Q1

REPORT INFORMATION
  Report Type: 
  Country: None (occurrence: None)
  Receive Date: 20120206
  Receipt Date: 20120201
  Transmission Date: 20120608
  Serious: Yes (Hospitalization)
  Sender: FDA-Public Use
  Company Number: BR-PFIZER INC-2012028604

PATIENT
  Age: 58 Year
  Sex: Male

DRUGS (5)
  1. ASPIRIN [Concomitant]
  2. LIPITOR [Suspect]
     Indication: BLOOD CHOLESTEROL
     Dosage: 20MG, 1X/DAY
     Route: 048
     Dates: start: 20080201, end: 20090101
  3. AMIODARONE HYDROCHLORIDE [Concomitant]
  4. METOPROLOL SUCCINATE [Concomitant]
  5. NAPRIX [Concomitant]

REACTIONS (3)
  - MYOCARDIAL INFARCTION [None]
  - PALPITATIONS [None]
  - ANGIOPLASTY [None]
